FAERS Safety Report 9776674 (Version 1)
Quarter: 2013Q4

REPORT INFORMATION
  Report Type: Report from Study
  Country: US (occurrence: US)
  Receive Date: 20131220
  Receipt Date: 20131220
  Transmission Date: 20140711
  Serious: Yes (Hospitalization)
  Sender: FDA-Public Use
  Company Number: US-ABBVIE-13P-163-1179406-00

PATIENT
  Sex: Female
  Weight: 81.72 kg

DRUGS (7)
  1. HUMIRA [Suspect]
     Indication: RHEUMATOID ARTHRITIS
     Route: 058
     Dates: start: 2008
  2. SULFASALAZINE [Concomitant]
     Indication: RHEUMATOID ARTHRITIS
  3. TRAMADOL [Concomitant]
     Indication: PAIN
  4. FLEXERIL [Concomitant]
     Indication: MUSCULOSKELETAL STIFFNESS
  5. AMBIEN [Concomitant]
     Indication: INSOMNIA
  6. HYDROCODONE [Concomitant]
     Indication: PAIN
  7. MULTIVITAMIN [Concomitant]
     Indication: VITAMIN SUPPLEMENTATION

REACTIONS (4)
  - Alveolitis allergic [Recovered/Resolved]
  - Knee arthroplasty [Recovered/Resolved]
  - Knee arthroplasty [Recovered/Resolved]
  - Surgery [Recovered/Resolved]
